FAERS Safety Report 5194327-6 (Version None)
Quarter: 2006Q4

REPORT INFORMATION
  Report Type: 
  Country: None (occurrence: None)
  Receive Date: 20061228
  Receipt Date: 20061031
  Transmission Date: 20070319
  Serious: Yes (Hospitalization)
  Sender: FDA-Public Use
  Company Number: US-ELI_LILLY_AND_COMPANY-US200611000281

PATIENT
  Age: 51 Year
  Sex: Male

DRUGS (4)
  1. HUMALOG [Suspect]
     Indication: DIABETES MELLITUS
     Dosage: UNK, UNK
  2. LANTUS [Concomitant]
     Indication: DIABETES MELLITUS
     Dosage: 86 U, EACH EVENING
  3. CRESTOR [Concomitant]
     Indication: BLOOD CHOLESTEROL INCREASED
     Dosage: 30 MG, UNK
  4. AMBIEN [Concomitant]
     Indication: SLEEP DISORDER
     Dosage: 10 MG, EACH EVENING

REACTIONS (9)
  - BLOOD CHOLESTEROL [None]
  - BLOOD CREATINE ABNORMAL [None]
  - BLOOD UREA ABNORMAL [None]
  - CATARACT [None]
  - DRUG INEFFECTIVE [None]
  - HYPERTENSION [None]
  - MUSCLE SPASMS [None]
  - NEUROPATHY PERIPHERAL [None]
  - VASCULAR BYPASS GRAFT [None]
